FAERS Safety Report 8591796-6 (Version None)
Quarter: 2012Q3

REPORT INFORMATION
  Report Type: 
  Country: None (occurrence: None)
  Receive Date: 20120814
  Receipt Date: 20120808
  Transmission Date: 20120928
  Serious: Yes (Other)
  Sender: FDA-Public Use
  Company Number: PHHY2012AU060209

PATIENT
  Age: 85 Year

DRUGS (3)
  1. CRESTOR [Concomitant]
  2. NORVASC [Concomitant]
     Indication: HYPERTENSION
     Dosage: 10MG DAILY
     Dates: start: 20111021
  3. IMATINIB MESYLATE [Suspect]
     Indication: GASTROINTESTINAL STROMAL TUMOUR
     Dosage: 400MG DAILY
     Route: 048
     Dates: start: 20110919, end: 20120305

REACTIONS (1)
  - LICHENOID KERATOSIS [None]
